FAERS Safety Report 12239795 (Version 1)
Quarter: 2016Q2

REPORT INFORMATION
  Report Type: Spontaneous
  Country: US (occurrence: US)
  Receive Date: 20160405
  Receipt Date: 20160405
  Transmission Date: 20160815
  Serious: No
  Sender: FDA-Public Use
  Company Number: US-ROCHE-1626333

PATIENT
  Sex: Female

DRUGS (2)
  1. TYLENOL [Concomitant]
     Active Substance: ACETAMINOPHEN
     Route: 065
  2. ERIVEDGE [Suspect]
     Active Substance: VISMODEGIB
     Indication: BASAL CELL CARCINOMA
     Dosage: SAME DOSE ON 19/AUG/2015.
     Route: 048
     Dates: start: 20150818

REACTIONS (6)
  - Dizziness [Unknown]
  - Muscle spasms [Unknown]
  - Diarrhoea [Unknown]
  - Constipation [Unknown]
  - Speech disorder [Recovered/Resolved]
  - Pruritus [Unknown]
